FAERS Safety Report 4700624-8 (Version None)
Quarter: 2005Q2

REPORT INFORMATION
  Report Type: 
  Country: None (occurrence: None)
  Receive Date: 20050627
  Receipt Date: 20050617
  Transmission Date: 20051028
  Serious: Yes (Other)
  Sender: FDA-Public Use
  Company Number: GB-MERCK-0506GBR00143

PATIENT
  Age: 59 Year
  Sex: Female
  Weight: 70 kg

DRUGS (3)
  1. ZETIA [Suspect]
     Indication: LIPIDS INCREASED
     Route: 048
     Dates: start: 20050526, end: 20050530
  2. PROPRANOLOL HYDROCHLORIDE [Concomitant]
     Route: 048
  3. INDAPAMIDE [Concomitant]
     Route: 048

REACTIONS (4)
  - DIZZINESS [None]
  - DYSPEPSIA [None]
  - HEADACHE [None]
  - MYALGIA [None]
